FAERS Safety Report 9207421 (Version 1)
Quarter: 2013Q2

REPORT INFORMATION
  Report Type: Spontaneous
  Country: US (occurrence: None)
  Receive Date: 20130402
  Receipt Date: 20130402
  Transmission Date: 20140414
  Serious: Yes (Hospitalization)
  Sender: FDA-Public Use
  Company Number: None

PATIENT
  Age: 82 Year
  Sex: Male
  Weight: 101.4 kg

DRUGS (1)
  1. PRADAXA? 150MG [Suspect]
     Indication: ATRIAL FIBRILLATION
     Dosage: UNSURE
     Route: 048

REACTIONS (7)
  - Fall [None]
  - Head injury [None]
  - Joint injury [None]
  - Memory impairment [None]
  - Balance disorder [None]
  - Subarachnoid haemorrhage [None]
  - Haematoma [None]
